FAERS Safety Report 7628359-2 (Version None)
Quarter: 2011Q3

REPORT INFORMATION
  Report Type: 
  Country: None (occurrence: None)
  Receive Date: 20110722
  Receipt Date: 20110719
  Transmission Date: 20111222
  Serious: Yes (Hospitalization, Other)
  Sender: FDA-Public Use
  Company Number: US-BAYER-2011-041238

PATIENT
  Age: 28 Year
  Sex: Female

DRUGS (1)
  1. MIRENA [Suspect]
     Indication: CONTRACEPTION
     Dosage: 20 MCG/24HR, CONT
     Route: 015
     Dates: start: 20101025, end: 20110423

REACTIONS (5)
  - DIZZINESS [None]
  - PAIN [None]
  - ECTOPIC PREGNANCY [None]
  - ABDOMINAL PAIN [None]
  - INTRA-ABDOMINAL HAEMORRHAGE [None]
